FAERS Safety Report 6693326-2 (Version None)
Quarter: 2010Q2

REPORT INFORMATION
  Report Type: 
  Country: None (occurrence: None)
  Receive Date: 20100421
  Receipt Date: 20100421
  Transmission Date: 20101027
  Serious: Yes (Disabling, Other)
  Sender: FDA-Public Use
  Company Number: None

PATIENT
  Sex: Male
  Weight: 61.2356 kg

DRUGS (1)
  1. XALATAN [Suspect]
     Indication: GLAUCOMA
     Dosage: 1 DROP 1 PER DAY (NIGHT) EYE 04/01/2010 TO INCLUDING 04/02/2010
     Dates: start: 20100401, end: 20100402

REACTIONS (10)
  - EYE IRRITATION [None]
  - EYE PAIN [None]
  - EYE SWELLING [None]
  - EYELID OEDEMA [None]
  - FOREIGN BODY SENSATION IN EYES [None]
  - LACRIMATION INCREASED [None]
  - MALAISE [None]
  - PRODUCT DROPPER ISSUE [None]
  - SWELLING FACE [None]
  - VISION BLURRED [None]
